FAERS Safety Report 5572844-4 (Version None)
Quarter: 2007Q4

REPORT INFORMATION
  Report Type: 
  Country: None (occurrence: None)
  Receive Date: 20071223
  Receipt Date: 20071220
  Transmission Date: 20080405
  Serious: Yes (Death)
  Sender: FDA-Public Use
  Company Number: PHHO2007IT18188

PATIENT
  Age: 69 Year
  Sex: Male

DRUGS (2)
  1. INDACTEROL VS FORMOTEROL VS PLACEBO [Suspect]
     Indication: CHRONIC OBSTRUCTIVE PULMONARY DISEASE
     Dates: start: 20070220
  2. CLENIL [Concomitant]

REACTIONS (1)
  - RESPIRATORY FAILURE [None]
